FAERS Safety Report 7438103-X (Version None)
Quarter: 2011Q2

REPORT INFORMATION
  Report Type: 
  Country: None (occurrence: None)
  Receive Date: 20110426
  Receipt Date: 20110420
  Transmission Date: 20111010
  Serious: Yes (Death)
  Sender: FDA-Public Use
  Company Number: US-CELGENEUS-163-21880-11042732

PATIENT
  Sex: Male

DRUGS (11)
  1. FLUCONAZOLE [Concomitant]
     Route: 065
  2. FUROSEMIDE [Concomitant]
     Route: 065
  3. ATENOLOL [Concomitant]
     Route: 065
  4. ALBUTEROL [Concomitant]
     Route: 065
  5. LISINOPRIL [Concomitant]
     Route: 065
  6. AMOXICILLIN [Concomitant]
     Route: 065
  7. ACETAMINOPHEN [Concomitant]
     Route: 065
  8. MAALOX [Concomitant]
     Route: 065
  9. TRAZODONE HCL [Concomitant]
     Route: 065
  10. REVLIMID [Suspect]
     Dosage: 10 MILLIGRAM
     Route: 048
     Dates: start: 20110222, end: 20110101
  11. ZOCOR [Concomitant]
     Route: 065

REACTIONS (1)
  - DEATH [None]
